FAERS Safety Report 6399539-1 (Version None)
Quarter: 2009Q4

REPORT INFORMATION
  Report Type: 
  Country: None (occurrence: None)
  Receive Date: 20091014
  Receipt Date: 20091006
  Transmission Date: 20100525
  Serious: Yes (Other)
  Sender: FDA-Public Use
  Company Number: GB-JNJFOC-20091002029

PATIENT
  Sex: Male

DRUGS (2)
  1. RISPERDAL CONSTA [Suspect]
     Indication: DRUG USE FOR UNKNOWN INDICATION
     Route: 030
  2. RISPERDAL [Suspect]
     Indication: DRUG USE FOR UNKNOWN INDICATION
     Dosage: 2 MG IN THE MORNING, 6 MG IN THE EVENING
     Route: 048

REACTIONS (4)
  - DRUG INEFFECTIVE [None]
  - PANIC ATTACK [None]
  - PSYCHOTIC DISORDER [None]
  - SYNCOPE [None]
